FAERS Safety Report 8914194 (Version 2)
Quarter: 2012Q4

REPORT INFORMATION
  Report Type: 
  Country: US (occurrence: US)
  Receive Date: 20121119
  Receipt Date: 20121218
  Transmission Date: 20130627
  Serious: No
  Sender: FDA-Public Use
  Company Number: US-PFIZER INC-2012284677

PATIENT
  Age: 57 Year
  Sex: Female
  Weight: 41 kg

DRUGS (5)
  1. ESTRING [Suspect]
     Indication: DRYNESS VAGINAL
     Dosage: 2 mg, cyclic
     Route: 067
     Dates: start: 20120320, end: 20121015
  2. ESTRING [Suspect]
     Indication: MENOPAUSAL SYMPTOMS
  3. ESTRING [Suspect]
     Indication: VAGINITIS ATROPHIC
  4. INDERAL [Concomitant]
     Dosage: UNK
  5. NEXIUM [Concomitant]
     Dosage: UNK

REACTIONS (2)
  - Labia enlarged [Unknown]
  - Oedema genital [Unknown]
